FAERS Safety Report 4852889-X (Version None)
Quarter: 2005Q4

REPORT INFORMATION
  Report Type: 
  Country: None (occurrence: None)
  Receive Date: 20051214
  Receipt Date: 20051115
  Transmission Date: 20060501
  Serious: Yes (Hospitalization)
  Sender: FDA-Public Use
  Company Number: FR-NOVOPROD-248645

PATIENT
  Age: 28 Year
  Sex: Male
  Weight: 22 kg

DRUGS (6)
  1. NORDITROPIN SIMPLEXX [Suspect]
     Indication: ILL-DEFINED DISORDER
     Dates: start: 20050622
  2. LEVOTHYROXINE SODIUM [Concomitant]
     Dosage: 37.5 UG, QD
     Route: 048
  3. LAMICTAL [Concomitant]
     Route: 048
  4. FORADIL                                 /DEN/ [Concomitant]
     Dosage: 24 UG, QD
     Route: 048
  5. OROCAL VITAMIN D [Concomitant]
     Dosage: 1 TAB, UNK
     Route: 048
     Dates: start: 20050626
  6. OXYGENOTHERAPY 24H/24H [Concomitant]
     Dosage: UNK, UNK

REACTIONS (1)
  - RESPIRATORY DISTRESS [None]
